FAERS Safety Report 10172244 (Version 1)
Quarter: 2014Q2

REPORT INFORMATION
  Report Type: Spontaneous
  Country: US (occurrence: US)
  Receive Date: 20140515
  Receipt Date: 20140515
  Transmission Date: 20141212
  Serious: Yes (Other)
  Sender: FDA-Public Use
  Company Number: US-AMGEN INC.-USASP2014035291

PATIENT
  Age: 70 Year
  Sex: Female

DRUGS (2)
  1. ENBREL [Suspect]
     Indication: RHEUMATOID ARTHRITIS
     Dosage: 50 MG, QWK
     Route: 058
     Dates: start: 200711
  2. ESTRACE VAGINAL [Concomitant]
     Dosage: UNK
     Dates: start: 201402

REACTIONS (4)
  - Bladder operation [Unknown]
  - Migraine [Unknown]
  - Visual impairment [Unknown]
  - Arthritis [Unknown]
